FAERS Safety Report 5976191-8 (Version None)
Quarter: 2008Q4

REPORT INFORMATION
  Report Type: 
  Country: None (occurrence: None)
  Receive Date: 20081202
  Receipt Date: 20081124
  Transmission Date: 20090506
  Serious: Yes (Other)
  Sender: FDA-Public Use
  Company Number: CL-JNJFOC-20081102895

PATIENT
  Sex: Female
  Weight: 66 kg

DRUGS (2)
  1. RISPERIDONE [Suspect]
     Route: 030
  2. RISPERIDONE [Suspect]
     Indication: SCHIZOPHRENIA
     Route: 030

REACTIONS (2)
  - AFFECT LABILITY [None]
  - SUICIDAL IDEATION [None]
